FAERS Safety Report 25979404 (Version 1)
Quarter: 2025Q4

REPORT INFORMATION
  Report Type: Spontaneous
  Country: JP (occurrence: JP)
  Receive Date: 20251030
  Receipt Date: 20251030
  Transmission Date: 20260117
  Serious: Yes (Hospitalization)
  Sender: MYLAN
  Company Number: JP-VIATRISJAPAN-2025M1090379AA

PATIENT
  Age: 61 Year
  Sex: Male

DRUGS (1)
  1. LIPITOR [Suspect]
     Active Substance: ATORVASTATIN CALCIUM
     Indication: Product used for unknown indication

REACTIONS (3)
  - Tubulointerstitial nephritis [Recovering/Resolving]
  - Fanconi syndrome [Recovering/Resolving]
  - Rhabdomyolysis [Recovering/Resolving]
